FAERS Safety Report 20943162 (Version 1)
Quarter: 2022Q2

REPORT INFORMATION
  Report Type: Spontaneous
  Country: US (occurrence: None)
  Receive Date: 20220608
  Receipt Date: 20220608
  Transmission Date: 20220721
  Serious: Yes (Other)
  Sender: FDA-Public Use
  Company Number: None

PATIENT
  Age: 58 Year
  Sex: Female
  Weight: 52.16 kg

DRUGS (11)
  1. DEXTROAMPHET SACCHARAT, AMPHET ASPARTATE, DEXTROAMPHET SULFATE AND AMP [Suspect]
     Active Substance: AMPHETAMINE ASPARTATE\AMPHETAMINE SULFATE\DEXTROAMPHETAMINE SACCHARATE\DEXTROAMPHETAMINE SULFATE
     Indication: Attention deficit hyperactivity disorder
     Dosage: OTHER STRENGTH : 30MG ER CAP;?OTHER QUANTITY : 30;?
     Route: 048
  2. DEXTROAMPHET SACCHARAT, AMPHET ASPARTATE, DEXTROAMPHET SULFATE AND AMP [Concomitant]
     Active Substance: AMPHETAMINE ASPARTATE\AMPHETAMINE SULFATE\DEXTROAMPHETAMINE SACCHARATE\DEXTROAMPHETAMINE SULFATE
  3. CLONAZEPAM [Concomitant]
     Active Substance: CLONAZEPAM
  4. VENLAFAXINE [Concomitant]
     Active Substance: VENLAFAXINE HYDROCHLORIDE
  5. XS Acetaminophen or Ibuprofen [Concomitant]
  6. Walgreens Multivitamin for women 50+ [Concomitant]
  7. Kroger allergy tab diphenhydramine HCI [Concomitant]
  8. Kroger eye health + Lutein vitamin and mineral supplement [Concomitant]
  9. Amphetamine Salts ER Cap [Concomitant]
     Dosage: OTHER STRENGTH : 30MG ER CAP;?OTHER QUANTITY : 30;?
     Route: 048
  10. LUTEIN VITAMIN [Concomitant]
  11. MINERAL SUPPLEMENT [Concomitant]

REACTIONS (4)
  - Rash vesicular [None]
  - Eyelid rash [None]
  - Rash [None]
  - Rash [None]

NARRATIVE: CASE EVENT DATE: 20220411
